FAERS Safety Report 8177290-5 (Version None)
Quarter: 2012Q1

REPORT INFORMATION
  Report Type: 
  Country: None (occurrence: None)
  Receive Date: 20120301
  Receipt Date: 20120228
  Transmission Date: 20120608
  Serious: Yes (Death)
  Sender: FDA-Public Use
  Company Number: AT-ROCHE-1002851

PATIENT
  Sex: Female
  Weight: 50 kg

DRUGS (8)
  1. SINGULAIR [Concomitant]
  2. TRAZODONE HCL [Concomitant]
  3. SPIRIVA [Concomitant]
  4. BUDESONIDE [Concomitant]
  5. BONIVA [Suspect]
     Indication: OSTEOPOROSIS
     Route: 042
     Dates: start: 20110930, end: 20110930
  6. CAL-D-VITA [Concomitant]
  7. FORMOTEROL FUMARATE [Concomitant]
  8. ASPIRIN [Concomitant]

REACTIONS (1)
  - ANAPHYLACTIC SHOCK [None]
